FAERS Safety Report 23861443 (Version 1)
Quarter: 2024Q2

REPORT INFORMATION
  Report Type: Spontaneous
  Country: FR (occurrence: FR)
  Receive Date: 20240516
  Receipt Date: 20240516
  Transmission Date: 20240716
  Serious: Yes (Other)
  Sender: FDA-Public Use
  Company Number: FR-BAUSCH-BL-2020-018709

PATIENT
  Age: 67 Year
  Sex: Female

DRUGS (17)
  1. BIMATOPROST\TIMOLOL [Suspect]
     Active Substance: BIMATOPROST\TIMOLOL
     Indication: Glaucoma
     Dosage: 1 DROP IN THE EVENING
     Route: 047
     Dates: start: 2020, end: 202003
  2. BIMATOPROST\TIMOLOL [Suspect]
     Active Substance: BIMATOPROST\TIMOLOL
     Indication: Glaucoma
     Dosage: 1 DROP IN THE EVENING
     Route: 047
     Dates: end: 201910
  3. DEXAMETHASONE\NEOMYCIN SULFATE [Suspect]
     Active Substance: DEXAMETHASONE\NEOMYCIN SULFATE
     Indication: Postoperative care
     Dosage: AFTER CATARACT SURGERY FOR THE RIGHT EYE
     Route: 047
     Dates: start: 20201005
  4. DEXAMETHASONE\NEOMYCIN SULFATE [Suspect]
     Active Substance: DEXAMETHASONE\NEOMYCIN SULFATE
     Indication: Postoperative care
     Dosage: AGAIN PRESCRIBED FOLLOWING GLAUCOMA SURGERY WAS PERFORMED (ON THE RIGHT EYE) FOR 15 DAYS?LAST ADM...
     Route: 047
     Dates: start: 202003
  5. DEXAMETHASONE\NEOMYCIN SULFATE [Suspect]
     Active Substance: DEXAMETHASONE\NEOMYCIN SULFATE
     Indication: Postoperative care
     Dosage: PRESCRIBED FOR FIFTEEN DAYS FOLLOWING GLAUCOMA SURGERY WAS PERFORMED ON LEFT EYE?LAST ADMIN DATE:...
     Route: 047
     Dates: start: 201910
  6. BORIC ACID\SODIUM BORATE [Suspect]
     Active Substance: BORIC ACID\SODIUM BORATE
     Indication: Postoperative care
     Dosage: FOR BOTH EYES
     Route: 065
     Dates: start: 201910
  7. DIAMOX SEQUELS [Suspect]
     Active Substance: ACETAZOLAMIDE
     Indication: Intraocular pressure increased
     Dosage: HALF A TABLET TWICE A DAY (MORNING AND EVENING) FOR THREE DAYS
     Route: 048
     Dates: start: 202003, end: 202003
  8. DIAMOX SEQUELS [Suspect]
     Active Substance: ACETAZOLAMIDE
     Indication: Intraocular pressure increased
     Dosage: LAST ADMIN DATE: OCT 2019
     Route: 065
     Dates: start: 20191012
  9. DIAMOX SEQUELS [Suspect]
     Active Substance: ACETAZOLAMIDE
     Indication: Intraocular pressure increased
     Dosage: TWICE A DAY (MORNING AND EVENING) FOR THREE DAYS
     Route: 048
     Dates: start: 201910, end: 201910
  10. INDOMETHACIN [Suspect]
     Active Substance: INDOMETHACIN
     Indication: Postoperative care
     Dosage: BETWEEN 29/JUN/2020 AND 24/JUL/2020 APPROX, USED INTERMITTENTLY FOR BLURRY VISION ON THE RIGHT EYE
     Route: 047
     Dates: start: 202006, end: 202007
  11. INDOMETHACIN [Suspect]
     Active Substance: INDOMETHACIN
     Indication: Postoperative care
     Dosage: ONE DROP 3 TIMES PER DAY FOR 1 MONTH FOR THE RIGHT EYE AFTER CATARACT SURGERY
     Route: 047
     Dates: start: 20201005
  12. INDOMETHACIN [Suspect]
     Active Substance: INDOMETHACIN
     Indication: Postoperative care
     Dosage: AGAIN PRESCRIBED FOR ONE MONTH FOLLOWING TRABECULECTOMY PERFORMED ON A GLAUCOMA (ON THE RIGHT EYE...
     Route: 047
     Dates: start: 202003
  13. INDOMETHACIN [Suspect]
     Active Substance: INDOMETHACIN
     Indication: Postoperative care
     Dosage: FIRST PRESCRIBED FOR ONE MONTH FOLLOWING GLAUCOMA SURGERY PERFORMED ON LEFT EYE, 1 DROP IN LEFT E...
     Route: 047
     Dates: start: 201910
  14. LEVOCABASTINE HYDROCHLORIDE [Suspect]
     Active Substance: LEVOCABASTINE HYDROCHLORIDE
     Indication: Conjunctivitis allergic
     Dosage: PRESCRIBED BETWEEN 29/JUN/2020 AND 30/JUN/2020, USED INTERMITTENTLY (ONLY THREE OR FOUR USES)
     Route: 065
     Dates: start: 20200629, end: 20200630
  15. HYALURONATE SODIUM\TREHALOSE [Suspect]
     Active Substance: HYALURONATE SODIUM\TREHALOSE
     Indication: Dry eye
     Dosage: FOUR TO FIVE DROPS IN THE LEFT EYE ONLY FOR 6 MONTHS AND RIGHT EYE (DOSE UNSPECIFIED)
     Route: 047
     Dates: start: 202002
  16. TRUSOPT [Suspect]
     Active Substance: DORZOLAMIDE HYDROCHLORIDE
     Indication: Glaucoma
     Dosage: 1 DROP MORNING AND EVENING
     Route: 047
     Dates: end: 201910
  17. TRUSOPT [Suspect]
     Active Substance: DORZOLAMIDE HYDROCHLORIDE
     Indication: Glaucoma
     Dosage: 1 DROP MORNING AND EVENING
     Route: 047
     Dates: start: 2020, end: 202003

REACTIONS (6)
  - Cataract [Not Recovered/Not Resolved]
  - Presbyopia [Unknown]
  - Product prescribing error [Unknown]
  - Myopia [Unknown]
  - Lacrimation increased [Recovering/Resolving]
  - Dry eye [Unknown]

NARRATIVE: CASE EVENT DATE: 20200101
